FAERS Safety Report 9380462 (Version 1)
Quarter: 2013Q3

REPORT INFORMATION
  Report Type: Spontaneous
  Country: AU (occurrence: AU)
  Receive Date: 20130702
  Receipt Date: 20130702
  Transmission Date: 20140515
  Serious: Yes (Hospitalization)
  Sender: FDA-Public Use
  Company Number: AU-009507513-1306AUS012280

PATIENT
  Age: 86 Year
  Sex: Male
  Weight: 66 kg

DRUGS (10)
  1. SIMVASTATIN [Suspect]
     Dosage: 40 MG, QD
     Route: 048
  2. ASPIRIN [Suspect]
     Dosage: 75 MG, QD
     Route: 048
  3. ATENOLOL [Suspect]
     Dosage: 50 MG, QD
  4. FELODIPINE [Suspect]
     Dosage: 10 MG, QD
     Route: 048
  5. LANSOPRAZOLE [Suspect]
     Dosage: 30 MG, UNK
     Route: 048
     Dates: start: 20121204, end: 20130219
  6. MELOXICAM [Suspect]
     Dosage: 7.5 MG, QD
     Route: 048
  7. PERINDOPRIL [Suspect]
     Dosage: 8 MG, QD
  8. FERROUS FUMARATE (+) FOLIC ACID [Concomitant]
     Dosage: 350 MICROGRAM, QD
  9. LACTULOSE [Concomitant]
  10. VITAMINS (UNSPECIFIED) [Concomitant]
     Dosage: 1 DF, QD
     Route: 048

REACTIONS (3)
  - Circulatory collapse [Unknown]
  - Blood creatinine increased [Unknown]
  - Infection [Unknown]
